FAERS Safety Report 13720172 (Version 1)
Quarter: 2017Q3

REPORT INFORMATION
  Report Type: Other
  Country: DE (occurrence: DE)
  Receive Date: 20170706
  Receipt Date: 20170706
  Transmission Date: 20171127
  Serious: No
  Sender: FDA-Public Use
  Company Number: DE-LUPIN PHARMACEUTICALS INC.-E2B_00006678

PATIENT
  Age: 54 Year
  Sex: Male
  Weight: 120 kg

DRUGS (3)
  1. ATOZET 10 MG/80 MG [Suspect]
     Active Substance: ATORVASTATIN CALCIUM\EZETIMIBE
     Indication: LOW DENSITY LIPOPROTEIN INCREASED
     Dosage: UNK UNK,UNK,UNKNOWN
     Route: 048
     Dates: start: 20151012, end: 20151111
  2. INEGY 10 MG/40 MG [Suspect]
     Active Substance: EZETIMIBE\SIMVASTATIN
     Indication: LOW DENSITY LIPOPROTEIN INCREASED
     Dosage: UNK UNK,UNK,UNKNOWN
     Route: 048
     Dates: start: 20150622, end: 20151012
  3. SIMVASTATIN. [Suspect]
     Active Substance: SIMVASTATIN
     Indication: LOW DENSITY LIPOPROTEIN INCREASED
     Dosage: 40 MG,UNK,UNKNOWN
     Route: 048
     Dates: start: 20130523, end: 20150504

REACTIONS (4)
  - Myalgia [Recovering/Resolving]
  - Blood creatine phosphokinase increased [Recovering/Resolving]
  - Drug effect decreased [Recovering/Resolving]
  - Drug intolerance [Recovering/Resolving]

NARRATIVE: CASE EVENT DATE: 20150504
